FAERS Safety Report 12874313 (Version 2)
Quarter: 2016Q4

REPORT INFORMATION
  Report Type: Report from Study
  Country: ES (occurrence: ES)
  Receive Date: 20161021
  Receipt Date: 20161116
  Transmission Date: 20170207
  Serious: Yes (Hospitalization)
  Sender: FDA-Public Use
  Company Number: ES-BIOGEN-2016BI00306645

PATIENT
  Sex: Female
  Weight: 54 kg

DRUGS (5)
  1. PLEGRIDY [Suspect]
     Active Substance: PEGINTERFERON BETA-1A
     Indication: MULTIPLE SCLEROSIS
     Route: 058
     Dates: start: 20160202
  2. SERC [Concomitant]
     Active Substance: BETAHISTINE HYDROCHLORIDE
     Indication: DIZZINESS
     Route: 065
     Dates: start: 20160913
  3. CORTICOID [Concomitant]
     Active Substance: UNSPECIFIED INGREDIENT
     Indication: PRODUCT USED FOR UNKNOWN INDICATION
     Route: 065
  4. OMEPRAZOLE. [Concomitant]
     Active Substance: OMEPRAZOLE
     Indication: PROPHYLAXIS
     Route: 065
     Dates: start: 20160913, end: 20161013
  5. FOLI DOCE (FOLIC ACID AND VITAMIN B12) [Concomitant]
     Indication: FOLATE DEFICIENCY
     Route: 065
     Dates: start: 20160913

REACTIONS (1)
  - Psychotic disorder [Recovered/Resolved]

NARRATIVE: CASE EVENT DATE: 20161014
